FAERS Safety Report 14704865 (Version 1)
Quarter: 2018Q2

REPORT INFORMATION
  Report Type: Spontaneous
  Country: FR (occurrence: FR)
  Receive Date: 20180402
  Receipt Date: 20180402
  Transmission Date: 20180711
  Serious: Yes (Other)
  Sender: FDA-Public Use
  Company Number: PHHY2018FR057253

PATIENT
  Age: 47 Year
  Sex: Male

DRUGS (3)
  1. AMOXICILLINE/ACIDE CLAVULANIQUE SANDOZ [Suspect]
     Active Substance: AMOXICILLIN\CLAVULANIC ACID
     Indication: BRONCHOPNEUMOPATHY
     Dosage: 1G/125MG  3X/J
     Route: 048
  2. ROVAMYCINE [Suspect]
     Active Substance: SPIRAMYCIN
     Indication: BRONCHOPNEUMOPATHY
     Dosage: 3 DF, QD
     Route: 042
     Dates: start: 20171225, end: 20171228
  3. PARACETAMOL [Suspect]
     Active Substance: ACETAMINOPHEN
     Indication: ANALGESIC INTERVENTION SUPPORTIVE THERAPY
     Dosage: 3 DF, QD
     Route: 042
     Dates: start: 20171222, end: 20171226

REACTIONS (3)
  - Urticaria [Recovered/Resolved]
  - Malaise [Recovered/Resolved]
  - Diarrhoea [Recovered/Resolved]

NARRATIVE: CASE EVENT DATE: 20171228
